FAERS Safety Report 14694358 (Version 1)
Quarter: 2018Q1

REPORT INFORMATION
  Report Type: Report from Study
  Country: NL (occurrence: NL)
  Receive Date: 20180329
  Receipt Date: 20180329
  Transmission Date: 20180509
  Serious: Yes (Hospitalization, Other)
  Sender: FDA-Public Use
  Company Number: NL-TAKEDA-2017MPI000591

PATIENT
  Age: 77 Year
  Sex: Female

DRUGS (3)
  1. VELCADE [Suspect]
     Active Substance: BORTEZOMIB
     Indication: PLASMA CELL MYELOMA
     Dosage: 2.7 MG, QD
     Route: 065
     Dates: start: 20161219
  2. MELPHALAN. [Suspect]
     Active Substance: MELPHALAN
     Indication: PLASMA CELL MYELOMA
     Dosage: 13 MG, QD
     Route: 065
     Dates: start: 20161219
  3. PREDNISONE. [Suspect]
     Active Substance: PREDNISONE
     Indication: PLASMA CELL MYELOMA
     Dosage: 60 MG, QD
     Route: 065
     Dates: start: 20161219

REACTIONS (2)
  - Renal cell carcinoma [Unknown]
  - Pain management [Recovered/Resolved]

NARRATIVE: CASE EVENT DATE: 20161219
